FAERS Safety Report 9068935 (Version 1)
Quarter: 2013Q1

REPORT INFORMATION
  Report Type: Spontaneous
  Country: US (occurrence: US)
  Receive Date: 20130215
  Receipt Date: 20130215
  Transmission Date: 20140127
  Serious: Yes (Death)
  Sender: FDA-Public Use
  Company Number: US-BANPHARM-20130739

PATIENT
  Age: 41 Year
  Sex: Female

DRUGS (7)
  1. NAPROXEN [Suspect]
     Route: 048
  2. AMLODIPINE [Suspect]
  3. AMITRIPTYLINE [Suspect]
  4. OPIOIDS [Suspect]
  5. OPIOIDS [Suspect]
  6. BARBITURATES AND DERIVATIVES [Suspect]
  7. BENZODIAZEPINE [Suspect]

REACTIONS (4)
  - Completed suicide [Fatal]
  - Cardio-respiratory arrest [Fatal]
  - Cardiac arrest [None]
  - Respiratory arrest [None]
